FAERS Safety Report 7093613-2 (Version None)
Quarter: 2010Q4

REPORT INFORMATION
  Report Type: 
  Country: None (occurrence: None)
  Receive Date: 20101110
  Receipt Date: 20091101
  Transmission Date: 20110411
  Serious: No
  Sender: FDA-Public Use
  Company Number: US-KINGPHARMUSA00001-K200901363

PATIENT
  Sex: Male
  Weight: 86.168 kg

DRUGS (10)
  1. FLECTOR [Suspect]
     Indication: SPONDYLITIS
     Dosage: 1 PATCH, EVERY 12 HOURS
     Route: 061
     Dates: start: 20091001, end: 20090101
  2. ASPIRIN [Concomitant]
     Indication: CARDIAC OPERATION
     Dosage: 81 MG, QD
     Route: 048
  3. LIPITOR [Concomitant]
     Dosage: 40 MG, UNK
  4. FLAXSEED OIL [Concomitant]
     Dosage: UNK
  5. FISH OIL [Concomitant]
     Dosage: UNK
  6. METOPROLOL [Concomitant]
     Dosage: 25 MG, BID
  7. COENZYME Q10 [Concomitant]
     Dosage: 100 MG, UNK
  8. NEXIUM [Concomitant]
     Indication: GASTROOESOPHAGEAL REFLUX DISEASE
     Dosage: 40 MG, UNK
  9. CALCIUM [Concomitant]
     Dosage: 600 UNK, QD
  10. WELLBUTRIN [Concomitant]
     Dosage: 100 MG, UNK

REACTIONS (3)
  - DYSPNOEA [None]
  - HYPERSENSITIVITY [None]
  - PAIN IN EXTREMITY [None]
